FAERS Safety Report 7867657-4 (Version None)
Quarter: 2011Q4

REPORT INFORMATION
  Report Type: 
  Country: None (occurrence: None)
  Receive Date: 20111028
  Receipt Date: 20111027
  Transmission Date: 20120403
  Serious: Yes (Death, Other)
  Sender: FDA-Public Use
  Company Number: PHFR2011GB03295

PATIENT
  Sex: Male

DRUGS (5)
  1. AFINITOR [Suspect]
     Indication: RENAL CELL CARCINOMA
     Dosage: 50 MG, DAILY
     Route: 048
     Dates: start: 20110224, end: 20110323
  2. LEVOTHYROXINE SODIUM [Concomitant]
     Indication: HYPOTHYROIDISM
     Route: 048
  3. CYTOKINES AND IMMUNOMODULATORS [Suspect]
     Route: 065
  4. DEXAMETHASONE [Concomitant]
     Indication: RENAL CELL CARCINOMA
     Dosage: 2 MG, DAILY
     Route: 048
     Dates: start: 20110209
  5. CODEINE LINCTUS [Concomitant]
     Indication: COUGH
     Dosage: 10 ML, DAILY
     Route: 048
     Dates: start: 20110209

REACTIONS (9)
  - NEOPLASM MALIGNANT [None]
  - STOMATITIS [None]
  - PNEUMONITIS [None]
  - DECREASED APPETITE [None]
  - DYSPNOEA [None]
  - NEOPLASM PROGRESSION [None]
  - METASTASIS [None]
  - RASH [None]
  - WEIGHT DECREASED [None]
